FAERS Safety Report 4949601-2 (Version None)
Quarter: 2006Q1

REPORT INFORMATION
  Report Type: 
  Country: None (occurrence: None)
  Receive Date: 20060321
  Receipt Date: 20050606
  Transmission Date: 20060701
  Serious: Yes (Hospitalization)
  Sender: FDA-Public Use
  Company Number: ES-BOEHRINGER INGELHEIM PHARMACEUTICALS, INC.-2005-BP-09491BP

PATIENT
  Sex: Male
  Weight: 68 kg

DRUGS (9)
  1. MICARDIS [Suspect]
     Indication: CARDIOVASCULAR DISORDER
     Route: 048
     Dates: start: 20030625
  2. MICARDIS [Suspect]
     Indication: CEREBROVASCULAR ACCIDENT PROPHYLAXIS
  3. RAMIPRIL [Suspect]
     Indication: CARDIOVASCULAR DISORDER
     Route: 048
     Dates: start: 20030625
  4. RAMIPRIL [Suspect]
     Indication: CEREBROVASCULAR ACCIDENT PROPHYLAXIS
  5. DILTIAZEM [Concomitant]
  6. OMEPRAZOLE [Concomitant]
  7. MOLSIDOMINA [Concomitant]
  8. FLUVASTATIN [Concomitant]
  9. PENTOXIFYLLINE [Concomitant]

REACTIONS (1)
  - RENAL FAILURE [None]
